FAERS Safety Report 4319451-9 (Version None)
Quarter: 2004Q1

REPORT INFORMATION
  Report Type: 
  Country: None (occurrence: None)
  Receive Date: 20040318
  Receipt Date: 20040302
  Transmission Date: 20041129
  Serious: Yes (Death)
  Sender: FDA-Public Use
  Company Number: 2004BL001684

PATIENT
  Age: 74 Year
  Sex: Female
  Weight: 70 kg

DRUGS (3)
  1. BETAMANN [Suspect]
     Indication: GLAUCOMA
     Dosage: 1 GTT; TWICE A DAY; OPHTHALMIC
     Route: 047
     Dates: end: 20031204
  2. TROMCARDIN FORTE [Concomitant]
  3. TIMO-COMOD 0,5% UNPRESERVED [Concomitant]

REACTIONS (5)
  - ARRHYTHMIA [None]
  - CONJUNCTIVITIS [None]
  - ERYTHEMA [None]
  - EXTRASYSTOLES [None]
  - SUDDEN DEATH [None]
